FAERS Safety Report 14608144 (Version 1)
Quarter: 2018Q1

REPORT INFORMATION
  Report Type: Spontaneous
  Country: PL (occurrence: PL)
  Receive Date: 20180307
  Receipt Date: 20180307
  Transmission Date: 20180509
  Serious: Yes (Hospitalization)
  Sender: FDA-Public Use
  Company Number: PL-FRESENIUS KABI-FK201802448

PATIENT
  Age: 56 Year
  Sex: Male
  Weight: 96 kg

DRUGS (7)
  1. DOPOMINA [Concomitant]
     Indication: PRODUCT USED FOR UNKNOWN INDICATION
  2. FLUIDS [Concomitant]
     Active Substance: UNSPECIFIED INGREDIENT
     Indication: PRODUCT USED FOR UNKNOWN INDICATION
  3. PACLITAXEL (MANUFACTURER UNKNOWN) [Suspect]
     Active Substance: PACLITAXEL
     Indication: GENITAL CANCER MALE
     Route: 042
     Dates: start: 20150121, end: 20150126
  4. VANCOMYCIN [Concomitant]
     Active Substance: VANCOMYCIN
     Indication: PRODUCT USED FOR UNKNOWN INDICATION
  5. DOBUTREX [Concomitant]
     Active Substance: DOBUTAMINE HYDROCHLORIDE
     Indication: PRODUCT USED FOR UNKNOWN INDICATION
  6. LEVOXA [Concomitant]
     Active Substance: LEVOFLOXACIN
     Indication: PRODUCT USED FOR UNKNOWN INDICATION
  7. IFOSFAMIDE BAXTER [Suspect]
     Active Substance: IFOSFAMIDE
     Indication: GENITAL CANCER MALE
     Route: 042
     Dates: start: 20150121, end: 20150126

REACTIONS (4)
  - Platelet count decreased [Recovered/Resolved]
  - Somnolence [Recovered/Resolved]
  - Blood pressure decreased [Recovered/Resolved]
  - Diarrhoea [Recovered/Resolved]

NARRATIVE: CASE EVENT DATE: 20150130
